FAERS Safety Report 10165031 (Version 1)
Quarter: 2014Q2

REPORT INFORMATION
  Report Type: Spontaneous
  Country: US (occurrence: US)
  Receive Date: 20140510
  Receipt Date: 20140510
  Transmission Date: 20141212
  Serious: No
  Sender: FDA-Public Use
  Company Number: US-BRISTOL-MYERS SQUIBB COMPANY-20232203

PATIENT
  Age: 57 Year
  Sex: Male
  Weight: 99.77 kg

DRUGS (3)
  1. BYDUREON [Suspect]
     Indication: TYPE 2 DIABETES MELLITUS
     Dates: start: 20140209
  2. JANUMET [Concomitant]
     Dosage: 1DF: 50/1000MG
     Route: 048
  3. GLIPIZIDE [Concomitant]
     Dosage: BID TO TID
     Route: 048

REACTIONS (5)
  - Injection site reaction [Recovered/Resolved]
  - Underdose [Recovered/Resolved]
  - Nervousness [Recovered/Resolved]
  - Headache [Recovered/Resolved]
  - Product quality issue [Unknown]
